FAERS Safety Report 9685324 (Version 1)
Quarter: 2013Q4

REPORT INFORMATION
  Report Type: Report from Study
  Country: US (occurrence: US)
  Receive Date: 20131113
  Receipt Date: 20131113
  Transmission Date: 20140711
  Serious: Yes (Hospitalization)
  Sender: FDA-Public Use
  Company Number: US-JNJFOC-20131103306

PATIENT
  Age: 9 Year
  Sex: Male
  Weight: 24.7 kg

DRUGS (16)
  1. REMICADE [Suspect]
     Indication: COLITIS ULCERATIVE
     Route: 042
     Dates: start: 20100702
  2. 5-ASA [Concomitant]
     Indication: COLITIS ULCERATIVE
     Route: 048
  3. HYDROXYZINE [Concomitant]
     Route: 065
  4. HYDROCORTISONE [Concomitant]
     Route: 061
  5. FLUOCINOLONE [Concomitant]
     Route: 061
  6. ACETAMINOPHEN [Concomitant]
     Route: 065
  7. MULTIVITAMINS [Concomitant]
     Route: 065
  8. DESONIDE [Concomitant]
     Route: 061
  9. FLUTICASONE [Concomitant]
     Route: 055
  10. CALCIUM CARBONATE [Concomitant]
     Route: 065
  11. FEXOFENADINE [Concomitant]
     Route: 065
  12. AMOXICILLIN [Concomitant]
     Route: 065
  13. ZOFRAN [Concomitant]
     Route: 065
  14. PREDNISONE [Concomitant]
     Route: 065
  15. PROBIOTICS [Concomitant]
     Indication: COLITIS ULCERATIVE
     Route: 065
  16. ALBUTEROL SULPHATE [Concomitant]
     Route: 055

REACTIONS (1)
  - Pneumonia [Recovered/Resolved]
